FAERS Safety Report 25182477 (Version 3)
Quarter: 2025Q2

REPORT INFORMATION
  Report Type: Spontaneous
  Country: US (occurrence: US)
  Receive Date: 20250410
  Receipt Date: 20250509
  Transmission Date: 20250717
  Serious: No
  Sender: KINIKSA PHARMACEUTICALS
  Company Number: US-Kiniksa Pharmaceuticals Ltd.-2025KPU000488

PATIENT

DRUGS (3)
  1. ARCALYST [Suspect]
     Active Substance: RILONACEPT
     Indication: Pericarditis
     Route: 058
     Dates: start: 20250108, end: 20250108
  2. ARCALYST [Suspect]
     Active Substance: RILONACEPT
     Dosage: 160 MILLIGRAM, QW
     Route: 058
     Dates: start: 202501
  3. ARCALYST [Suspect]
     Active Substance: RILONACEPT
     Dosage: 160 MILLIGRAM, QW
     Route: 058
     Dates: start: 202501

REACTIONS (9)
  - Fear of injection [Unknown]
  - Loss of personal independence in daily activities [Unknown]
  - Social problem [Unknown]
  - Incorrect dose administered [Unknown]
  - Injection site discomfort [Unknown]
  - Injection site haemorrhage [Unknown]
  - Injection site swelling [Unknown]
  - Injection site mass [Unknown]
  - Injection site pain [Unknown]

NARRATIVE: CASE EVENT DATE: 20250328
